FAERS Safety Report 4355148-7 (Version None)
Quarter: 2004Q2

REPORT INFORMATION
  Report Type: 
  Country: None (occurrence: None)
  Receive Date: 20040510
  Receipt Date: 20040503
  Transmission Date: 20050107
  Serious: Yes (Death)
  Sender: FDA-Public Use
  Company Number: 200413442US

PATIENT
  Sex: 0

DRUGS (2)
  1. LOVENOX [Suspect]
     Dosage: DOSE: UNK
  2. TORADOL [Suspect]
     Dosage: DOSE: UNK

REACTIONS (1)
  - DEATH [None]
